FAERS Safety Report 24875770 (Version 3)
Quarter: 2025Q3

REPORT INFORMATION
  Report Type: Report from Study
  Country: CA (occurrence: CA)
  Receive Date: 20250122
  Receipt Date: 20250810
  Transmission Date: 20251021
  Serious: Yes (Other)
  Sender: ALEXION PHARMACEUTICALS
  Company Number: CA-AstraZeneca-CH-00787890A

PATIENT
  Age: 72 Year
  Sex: Female
  Weight: 68.027 kg

DRUGS (4)
  1. BENRALIZUMAB [Suspect]
     Active Substance: BENRALIZUMAB
     Indication: Asthma
  2. SINGULAIR [Concomitant]
     Active Substance: MONTELUKAST SODIUM
     Route: 065
  3. ADVAIR HFA [Concomitant]
     Active Substance: FLUTICASONE PROPIONATE\SALMETEROL XINAFOATE
     Route: 065
  4. VENTOLIN [Concomitant]
     Active Substance: ALBUTEROL SULFATE
     Route: 065

REACTIONS (6)
  - Pneumonia [Unknown]
  - Hernia [Unknown]
  - Cerebrovascular accident [Unknown]
  - Postoperative wound infection [Unknown]
  - Visual impairment [Unknown]
  - Lung disorder [Unknown]

NARRATIVE: CASE EVENT DATE: 20240416
